FAERS Safety Report 19110036 (Version 1)
Quarter: 2021Q2

REPORT INFORMATION
  Report Type: Spontaneous
  Country: US (occurrence: US)
  Receive Date: 20210408
  Receipt Date: 20210408
  Transmission Date: 20210717
  Serious: No
  Sender: FDA-Public Use
  Company Number: US-GW PHARMA-202104USGW01446

PATIENT

DRUGS (2)
  1. EPIDIOLEX [Suspect]
     Active Substance: CANNABIDIOL
     Dosage: INCREASING DOSAGE
     Route: 048
     Dates: start: 2021
  2. EPIDIOLEX [Suspect]
     Active Substance: CANNABIDIOL
     Indication: PETIT MAL EPILEPSY
     Dosage: 2 MILLIGRAM, BID
     Route: 048
     Dates: start: 20210106, end: 2021

REACTIONS (5)
  - Anger [Unknown]
  - Fatigue [Unknown]
  - Product use in unapproved indication [Unknown]
  - Accident [Unknown]
  - Emotional disorder [Unknown]

NARRATIVE: CASE EVENT DATE: 2021
